FAERS Safety Report 16681843 (Version 3)
Quarter: 2020Q3

REPORT INFORMATION
  Report Type: Report from Study
  Country: FR (occurrence: FR)
  Receive Date: 20190808
  Receipt Date: 20200909
  Transmission Date: 20201102
  Serious: Yes (Hospitalization, Other)
  Sender: FDA-Public Use
  Company Number: FR-AUROBINDO-AUR-APL-2019-044769

PATIENT
  Age: 23 Year
  Sex: Female

DRUGS (7)
  1. EMTRICITABINE [Suspect]
     Active Substance: EMTRICITABINE
     Dosage: UNK SECOND TABLET
     Route: 065
  2. EMTRICITABINE [Suspect]
     Active Substance: EMTRICITABINE
     Indication: HIV INFECTION
     Dosage: UNK
     Route: 065
  3. TENOFOVIR DISOPROXIL FILM COATED TABLETS [Suspect]
     Active Substance: TENOFOVIR DISOPROXIL
     Indication: HIV INFECTION
     Dosage: UNK
     Route: 065
  4. AMOXICILLIN. [Concomitant]
     Active Substance: AMOXICILLIN
     Indication: SINUSITIS
     Dosage: UNK
     Route: 065
  5. RILPIVIRINE [Suspect]
     Active Substance: RILPIVIRINE
     Indication: HIV INFECTION
     Dosage: UNK
     Route: 065
  6. TENOFOVIR DISOPROXIL FILM COATED TABLETS [Suspect]
     Active Substance: TENOFOVIR DISOPROXIL
     Dosage: UNK, SECOND TABLET
     Route: 065
  7. RILPIVIRINE [Suspect]
     Active Substance: RILPIVIRINE
     Dosage: UNK SECOND TABLET
     Route: 065

REACTIONS (12)
  - Paraesthesia oral [Recovered/Resolved]
  - Paraesthesia [Recovered/Resolved]
  - Cluster headache [Recovered/Resolved]
  - Eye pain [Recovered/Resolved]
  - Eyelid oedema [Recovered/Resolved]
  - Headache [Recovered/Resolved]
  - Rhinorrhoea [Recovered/Resolved]
  - Face oedema [Recovered/Resolved]
  - Vomiting [Recovered/Resolved]
  - Eye paraesthesia [Recovered/Resolved]
  - Lacrimation increased [Recovered/Resolved]
  - Sinusitis [Recovered/Resolved]
